FAERS Safety Report 20142925 (Version 1)
Quarter: 2021Q4

REPORT INFORMATION
  Report Type: Other
  Country: US (occurrence: None)
  Receive Date: 20211202
  Receipt Date: 20211202
  Transmission Date: 20220303
  Serious: No
  Sender: FDA-Public Use
  Company Number: US-ROCHE-2734565

PATIENT
  Age: 21 Year
  Sex: Male

DRUGS (11)
  1. OSELTAMIVIR [Suspect]
     Active Substance: OSELTAMIVIR
     Indication: Influenza
     Route: 048
  2. BALOXAVIR MARBOXIL [Suspect]
     Active Substance: BALOXAVIR MARBOXIL
     Indication: Influenza
     Dosage: ON DAYS 36 AND 43
     Route: 048
  3. MEROPENEM\VABORBACTAM [Concomitant]
     Active Substance: MEROPENEM\VABORBACTAM
     Indication: Pneumonia bacterial
  4. TEDIZOLID [Concomitant]
     Active Substance: TEDIZOLID
     Indication: Pneumonia bacterial
  5. CLOFAZIMINE [Concomitant]
     Active Substance: CLOFAZIMINE
     Indication: Pneumonia bacterial
  6. TIGECYCLINE [Concomitant]
     Active Substance: TIGECYCLINE
     Indication: Bronchopulmonary aspergillosis
  7. VORICONAZOLE [Concomitant]
     Active Substance: VORICONAZOLE
     Indication: Bronchopulmonary aspergillosis
  8. VANCOMYCIN [Concomitant]
     Active Substance: VANCOMYCIN
  9. POLYMYXIN B [Concomitant]
     Active Substance: POLYMYXIN B
  10. PERAMIVIR [Concomitant]
     Active Substance: PERAMIVIR
     Route: 042
  11. METHYLPREDNISOLONE [Concomitant]
     Active Substance: METHYLPREDNISOLONE

REACTIONS (3)
  - Drug resistance [Unknown]
  - Off label use [Unknown]
  - Intentional product use issue [Unknown]
